FAERS Safety Report 4408088-9 (Version None)
Quarter: 2004Q3

REPORT INFORMATION
  Report Type: 
  Country: None (occurrence: None)
  Receive Date: 20040722
  Receipt Date: 20040707
  Transmission Date: 20050211
  Serious: Yes (Other)
  Sender: FDA-Public Use
  Company Number: 2004-ES-00139ES(0)

PATIENT
  Age: 74 Year
  Sex: Male

DRUGS (8)
  1. ATROVENT AEROSOL (IPRATROPIUM BROMIDE) (AEM) (IPRATROPIUM-BR) [Suspect]
     Indication: EMPHYSEMA
     Dosage: IH LONG TERM USE
     Route: 055
  2. UROLOSIN (TAMSULOSIN HYDROCHLORIDE) (KA) [Concomitant]
  3. SINGULAIR (MONTELUKAST SODIUM) (NR) [Concomitant]
  4. SYMBICORT TURBUHALER (SYMBICORT TURBUHALER ^DRACO^) (NR) [Concomitant]
  5. BUTO-ASMA(SALBUTAMOL) (NR) [Concomitant]
  6. SUTRIL (TORASEMIDE) (NR) [Concomitant]
  7. OMEPRAZOLE [Concomitant]
  8. OXIS TURBUHALER (FORMOTEROL FUMARATE) (NR) [Concomitant]

REACTIONS (2)
  - RESPIRATORY FAILURE [None]
  - SUBCUTANEOUS HAEMATOMA [None]
